FAERS Safety Report 17459031 (Version 2)
Quarter: 2020Q2

REPORT INFORMATION
  Report Type: Spontaneous
  Country: AU (occurrence: AU)
  Receive Date: 20200226
  Receipt Date: 20200407
  Transmission Date: 20200713
  Serious: Yes (Other)
  Sender: FDA-Public Use
  Company Number: NVSC2020AU053398

PATIENT
  Age: 84 Year
  Sex: Male

DRUGS (2)
  1. LAMISIL DERMGEL [Suspect]
     Active Substance: TERBINAFINE HYDROCHLORIDE
     Indication: FUNGAL INFECTION
     Dosage: 15 MG, QD
     Route: 065
  2. LAMISIL DERMGEL [Suspect]
     Active Substance: TERBINAFINE HYDROCHLORIDE
     Indication: PRURITUS

REACTIONS (4)
  - Wound haemorrhage [Unknown]
  - Burning sensation [Unknown]
  - Rash [Unknown]
  - Limb injury [Unknown]

NARRATIVE: CASE EVENT DATE: 20200217
